FAERS Safety Report 5371673-4 (Version None)
Quarter: 2007Q2

REPORT INFORMATION
  Report Type: 
  Country: None (occurrence: None)
  Receive Date: 20070625
  Receipt Date: 20070608
  Transmission Date: 20071010
  Serious: Yes (Other)
  Sender: FDA-Public Use
  Company Number: 2007S1005328

PATIENT
  Age: 13 Year
  Sex: Female

DRUGS (1)
  1. MERCAPTAMINE BITARTRATE (MERCAPTAMINE BITARTRATE ) (150 MG) [Suspect]
     Indication: CYSTINOSIS
     Dosage: ORAL
     Route: 048

REACTIONS (2)
  - CARDIOLIPIN ANTIBODY POSITIVE [None]
  - SYSTEMIC LUPUS ERYTHEMATOSUS [None]
